FAERS Safety Report 9472614 (Version 5)
Quarter: 2014Q3

REPORT INFORMATION
  Report Type: Spontaneous
  Country: US (occurrence: US)
  Receive Date: 20130823
  Receipt Date: 20140722
  Transmission Date: 20150326
  Serious: Yes (Hospitalization, Other)
  Sender: FDA-Public Use
  Company Number: US-009507513-1308USA010213

PATIENT
  Sex: Female
  Weight: 70.3 kg

DRUGS (1)
  1. NUVARING [Suspect]
     Active Substance: ETHINYL ESTRADIOL\ETONOGESTREL
     Indication: CONTRACEPTION
     Dosage: UNK
     Route: 067
     Dates: start: 20060101, end: 20100823

REACTIONS (15)
  - Cardiac murmur [Unknown]
  - Chest pain [Unknown]
  - Urinary tract infection [Unknown]
  - Nasopharyngitis [Unknown]
  - Pulmonary embolism [Unknown]
  - Colitis ulcerative [Unknown]
  - Asthma [Unknown]
  - Atypical pneumonia [Unknown]
  - Viral upper respiratory tract infection [Unknown]
  - Pulmonary infarction [Unknown]
  - Infection [Unknown]
  - Acne [Unknown]
  - Skin disorder [Not Recovered/Not Resolved]
  - Pulmonary function test decreased [Not Recovered/Not Resolved]
  - Rib fracture [Unknown]

NARRATIVE: CASE EVENT DATE: 2007
